FAERS Safety Report 15619873 (Version 2)
Quarter: 2018Q4

REPORT INFORMATION
  Report Type: Spontaneous
  Country: US (occurrence: US)
  Receive Date: 20181115
  Receipt Date: 20181204
  Transmission Date: 20190205
  Serious: Yes (Life-Threatening, Hospitalization, Disabling, Other)
  Sender: FDA-Public Use
  Company Number: US-009507513-1811USA004662

PATIENT
  Sex: Male

DRUGS (3)
  1. ZERBAXA [Suspect]
     Active Substance: CEFTOLOZANE SULFATE\TAZOBACTAM SODIUM
     Dosage: 750MG EVERY 8 HOURS
     Route: 042
     Dates: start: 2018, end: 2018
  2. ZERBAXA [Suspect]
     Active Substance: CEFTOLOZANE SULFATE\TAZOBACTAM SODIUM
     Dosage: 750 MG, EVERY 8 HOURS
     Route: 042
     Dates: start: 2018
  3. ZERBAXA [Suspect]
     Active Substance: CEFTOLOZANE SULFATE\TAZOBACTAM SODIUM
     Indication: BACTERAEMIA
     Dosage: 750MG EVERY 8 HOURS
     Route: 042
     Dates: start: 20180925, end: 2018

REACTIONS (1)
  - Bacteraemia [Recovering/Resolving]

NARRATIVE: CASE EVENT DATE: 2018
